FAERS Safety Report 4420057-1 (Version None)
Quarter: 2004Q3

REPORT INFORMATION
  Report Type: 
  Country: None (occurrence: None)
  Receive Date: 20040805
  Receipt Date: 20040805
  Transmission Date: 20050211
  Serious: Yes (Hospitalization)
  Sender: FDA-Public Use
  Company Number: None

PATIENT
  Age: 41 Year
  Sex: Female
  Weight: 57.1 kg

DRUGS (5)
  1. CLODRONATE VS SCHERING OY [Suspect]
     Indication: BREAST CANCER
     Dosage: 800MG PO BID ORAL
     Route: 048
     Dates: start: 20030115, end: 20040803
  2. ESTRING [Concomitant]
  3. NEURONTIN [Concomitant]
  4. TAMOXIFEN CITRATE [Concomitant]
  5. PREVACID [Concomitant]

REACTIONS (3)
  - BREAST CELLULITIS [None]
  - CELLULITIS [None]
  - IMPLANT SITE REACTION [None]
